FAERS Safety Report 22039878 (Version 1)
Quarter: 2023Q1

REPORT INFORMATION
  Report Type: Spontaneous
  Country: GB (occurrence: GB)
  Receive Date: 20230227
  Receipt Date: 20230227
  Transmission Date: 20230417
  Serious: Yes (Other)
  Sender: FDA-Public Use
  Company Number: GB-TEVA-2023-GB-2860828

PATIENT
  Age: 67 Year
  Sex: Male

DRUGS (4)
  1. OXYCODONE [Suspect]
     Active Substance: OXYCODONE
     Indication: Analgesic therapy
     Route: 048
  2. IBUPROFEN [Suspect]
     Active Substance: IBUPROFEN
     Indication: Analgesic therapy
     Route: 048
  3. NORTRIPTYLINE [Suspect]
     Active Substance: NORTRIPTYLINE
     Indication: Analgesic therapy
     Route: 048
  4. ABSTRAL [Suspect]
     Active Substance: FENTANYL CITRATE
     Indication: Analgesic therapy
     Dosage: TOOK A DOSE OF 100 MICROGRAM IMMEDIATELY PRIOR TO PAINFUL DRESSING CHANGES
     Route: 060

REACTIONS (4)
  - Gastrointestinal disorder [Unknown]
  - Somnolence [Unknown]
  - Rash [Unknown]
  - Drug ineffective [Unknown]
